FAERS Safety Report 8227146-4 (Version None)
Quarter: 2012Q1

REPORT INFORMATION
  Report Type: 
  Country: None (occurrence: None)
  Receive Date: 20120322
  Receipt Date: 20120314
  Transmission Date: 20120608
  Serious: Yes (Other)
  Sender: FDA-Public Use
  Company Number: US-JNJFOC-20111101694

PATIENT
  Sex: Female
  Weight: 58.51 kg

DRUGS (1)
  1. LEVAQUIN [Suspect]
     Indication: EAR INFECTION
     Route: 048
     Dates: start: 20110930, end: 20111005

REACTIONS (14)
  - THYROID PAIN [None]
  - PALPITATIONS [None]
  - OEDEMA PERIPHERAL [None]
  - EATING DISORDER [None]
  - TENDON PAIN [None]
  - ABDOMINAL PAIN UPPER [None]
  - TENDONITIS [None]
  - MUSCLE ATROPHY [None]
  - HEART RATE INCREASED [None]
  - BACK PAIN [None]
  - FATIGUE [None]
  - SKIN DISCOLOURATION [None]
  - WEIGHT DECREASED [None]
  - DYSPNOEA [None]
